FAERS Safety Report 10097260 (Version 1)
Quarter: 2014Q2

REPORT INFORMATION
  Report Type: Spontaneous
  Country: US (occurrence: US)
  Receive Date: 20140422
  Receipt Date: 20140422
  Transmission Date: 20141212
  Serious: No
  Sender: FDA-Public Use
  Company Number: US-009507513-1404USA004996

PATIENT
  Sex: Female

DRUGS (1)
  1. COPPERTONE OIL FREE SPF 30 [Suspect]
     Indication: PRODUCT USED FOR UNKNOWN INDICATION
     Dosage: USED FOR TWO DAYS
     Route: 061

REACTIONS (2)
  - Rash pruritic [Unknown]
  - Rash erythematous [Unknown]
